FAERS Safety Report 9859666 (Version 1)
Quarter: 2014Q1

REPORT INFORMATION
  Report Type: Report from Study
  Country: US (occurrence: US)
  Receive Date: 20140131
  Receipt Date: 20140131
  Transmission Date: 20141002
  Serious: Yes (Hospitalization)
  Sender: FDA-Public Use
  Company Number: US-ABBVIE-14P-163-1193417-00

PATIENT
  Age: 14 Year
  Sex: Female
  Weight: 31.2 kg

DRUGS (4)
  1. HUMIRA [Suspect]
     Indication: CROHN^S DISEASE
     Route: 058
     Dates: start: 201208, end: 201301
  2. HUMIRA [Suspect]
     Route: 058
     Dates: start: 201301
  3. 6-MP [Concomitant]
     Indication: CROHN^S DISEASE
  4. GROWTH HORMONE [Concomitant]
     Indication: PRODUCT USED FOR UNKNOWN INDICATION

REACTIONS (5)
  - Malnutrition [Recovered/Resolved]
  - Therapy change [Recovered/Resolved]
  - Crohn^s disease [Recovered/Resolved]
  - Off label use [Unknown]
  - Drug dose omission [Unknown]
